FAERS Safety Report 21680850 (Version 1)
Quarter: 2022Q4

REPORT INFORMATION
  Report Type: Report from Study
  Country: AU (occurrence: AU)
  Receive Date: 20221205
  Receipt Date: 20221205
  Transmission Date: 20230113
  Serious: Yes (Hospitalization, Other)
  Sender: FDA-Public Use
  Company Number: AU-BRISTOL-MYERS SQUIBB COMPANY-2022-142457

PATIENT
  Age: 71 Year
  Sex: Female

DRUGS (8)
  1. NIVOLUMAB [Suspect]
     Active Substance: NIVOLUMAB
     Indication: Female reproductive neoplasm
     Route: 065
     Dates: start: 20220823
  2. NIVOLUMAB [Suspect]
     Active Substance: NIVOLUMAB
     Route: 065
     Dates: end: 20221027
  3. IPILIMUMAB [Suspect]
     Active Substance: IPILIMUMAB
     Indication: Female reproductive neoplasm
     Dosage: C1
     Route: 065
     Dates: start: 20220823
  4. IPILIMUMAB [Suspect]
     Active Substance: IPILIMUMAB
     Route: 065
     Dates: end: 20221027
  5. SODIUM CHLORIDE [Concomitant]
     Active Substance: SODIUM CHLORIDE
     Indication: Product used for unknown indication
     Dosage: ONCE
     Route: 065
     Dates: start: 20221121, end: 20221122
  6. SODIUM CHLORIDE [Concomitant]
     Active Substance: SODIUM CHLORIDE
     Dosage: ONCE
     Route: 065
     Dates: start: 20221121, end: 20221122
  7. SODIUM CHLORIDE [Concomitant]
     Active Substance: SODIUM CHLORIDE
     Dosage: ONCE
     Route: 065
     Dates: start: 20221121, end: 20221121
  8. SODIUM CHLORIDE [Concomitant]
     Active Substance: SODIUM CHLORIDE
     Dosage: ONCE
     Route: 065
     Dates: start: 20221121, end: 20221123

REACTIONS (1)
  - Hypercalcaemia [Recovered/Resolved]

NARRATIVE: CASE EVENT DATE: 20221122
